FAERS Safety Report 20382532 (Version 2)
Quarter: 2022Q1

REPORT INFORMATION
  Report Type: Spontaneous
  Country: PT (occurrence: PT)
  Receive Date: 20220127
  Receipt Date: 20220202
  Transmission Date: 20220423
  Serious: Yes (Other)
  Sender: FDA-Public Use
  Company Number: PT-Merz Pharmaceuticals GmbH-22-00067

PATIENT
  Age: 42 Year
  Sex: Male

DRUGS (3)
  1. BOTULINUM TOXIN TYPE A [Suspect]
     Active Substance: BOTULINUM TOXIN TYPE A
     Indication: VIth nerve paralysis
     Dosage: 10IU (5 IU IN EACH MUSCLE: RIGHT MEDIAL RECTUS (RMR) AND LEFT MEDIAL RECTUS)
     Route: 030
     Dates: start: 2017, end: 2017
  2. BOTULINUM TOXIN TYPE A [Suspect]
     Active Substance: BOTULINUM TOXIN TYPE A
     Indication: Off label use
     Dosage: 10IU [RMR (5U) AND LMR (5U)]
     Route: 030
  3. BOTULINUM TOXIN TYPE A [Suspect]
     Active Substance: BOTULINUM TOXIN TYPE A
     Dosage: 7.5IU [RMR (5U) AND LMR (2.5 U)]
     Route: 030
     Dates: start: 2018, end: 2018

REACTIONS (4)
  - Conjunctival haemorrhage [Recovering/Resolving]
  - Eyelid ptosis [Recovering/Resolving]
  - Therapeutic response decreased [Unknown]
  - Off label use [Unknown]

NARRATIVE: CASE EVENT DATE: 20170101
